FAERS Safety Report 14738093 (Version 1)
Quarter: 2018Q2

REPORT INFORMATION
  Report Type: Spontaneous
  Country: CN (occurrence: CN)
  Receive Date: 20180409
  Receipt Date: 20180409
  Transmission Date: 20180711
  Serious: Yes (Other)
  Sender: FDA-Public Use
  Company Number: CN-AKRON, INC.-2045399

PATIENT
  Age: 15 Year
  Sex: Female

DRUGS (1)
  1. ZIOPTAN [Suspect]
     Active Substance: TAFLUPROST
     Indication: OPEN ANGLE GLAUCOMA
     Route: 047
     Dates: start: 20170626

REACTIONS (2)
  - Growth of eyelashes [Recovering/Resolving]
  - Retinal detachment [Unknown]

NARRATIVE: CASE EVENT DATE: 20170727
